FAERS Safety Report 6014026-8 (Version None)
Quarter: 2008Q4

REPORT INFORMATION
  Report Type: 
  Country: None (occurrence: None)
  Receive Date: 20081219
  Receipt Date: 20080602
  Transmission Date: 20090506
  Serious: No
  Sender: FDA-Public Use
  Company Number: A0685654A

PATIENT
  Age: 83 Year
  Sex: Male

DRUGS (10)
  1. AVODART [Suspect]
     Dosage: .5MG PER DAY
     Route: 048
     Dates: start: 20040401
  2. FLOMAX [Suspect]
     Dosage: .4MG PER DAY
     Dates: start: 20040401
  3. FLOMAX [Concomitant]
  4. VYTORIN [Concomitant]
  5. VERAPAMIL [Concomitant]
  6. ZINC [Concomitant]
  7. ASPIRIN [Concomitant]
  8. VITAMIN E [Concomitant]
  9. TEMAZEPAM [Concomitant]
  10. CENTRUM [Concomitant]

REACTIONS (1)
  - DRUG INEFFECTIVE [None]
